FAERS Safety Report 25798924 (Version 1)
Quarter: 2025Q3

REPORT INFORMATION
  Report Type: Spontaneous
  Country: US (occurrence: US)
  Receive Date: 20250913
  Receipt Date: 20250913
  Transmission Date: 20251021
  Serious: Yes (Death, Hospitalization, Other)
  Sender: AMGEN
  Company Number: US-AMGEN-USASP2025183185

PATIENT

DRUGS (2)
  1. RITUXIMAB [Suspect]
     Active Substance: RITUXIMAB
     Indication: Neuromyelitis optica spectrum disorder
     Route: 065
  2. INEBILIZUMAB [Suspect]
     Active Substance: INEBILIZUMAB
     Indication: Neuromyelitis optica spectrum disorder
     Route: 065

REACTIONS (7)
  - Death [Fatal]
  - Adverse event [Unknown]
  - Infection [Unknown]
  - Neuromyelitis optica spectrum disorder [Unknown]
  - Shock [Unknown]
  - Respiratory failure [Unknown]
  - Off label use [Unknown]
